FAERS Safety Report 6295733-9 (Version None)
Quarter: 2009Q3

REPORT INFORMATION
  Report Type: 
  Country: None (occurrence: None)
  Receive Date: 20090803
  Receipt Date: 20090803
  Transmission Date: 20100115
  Serious: Yes (Life-Threatening, Disabling)
  Sender: FDA-Public Use
  Company Number: None

PATIENT
  Sex: Female
  Weight: 63.5036 kg

DRUGS (3)
  1. ASPIRIN [Suspect]
  2. ZOCOR [Suspect]
  3. NIASPAN [Suspect]

REACTIONS (1)
  - LIVER INJURY [None]
